FAERS Safety Report 24449464 (Version 1)
Quarter: 2024Q4

REPORT INFORMATION
  Report Type: Spontaneous
  Country: FR (occurrence: FR)
  Receive Date: 20241017
  Receipt Date: 20241017
  Transmission Date: 20250114
  Serious: Yes (Other)
  Sender: TEVA
  Company Number: None

PATIENT
  Age: 79 Year
  Sex: Female

DRUGS (3)
  1. ETOPOSIDE [Suspect]
     Active Substance: ETOPOSIDE
     Indication: Neuroendocrine carcinoma
     Dosage: C4, ETOPOSIDE TEVA 100 MG/5 ML, SOLUTION FOR INJECTION FOR INFUSION
     Route: 042
     Dates: start: 20240523, end: 20240525
  2. CARBOPLATIN [Suspect]
     Active Substance: CARBOPLATIN
     Indication: Neuroendocrine carcinoma
     Dosage: TIME INTERVAL: CYCLICAL: C4
     Route: 042
     Dates: start: 20240523, end: 20240523
  3. IMFINZI [Suspect]
     Active Substance: DURVALUMAB
     Indication: Neuroendocrine carcinoma
     Dosage: TIME INTERVAL: CYCLICAL: C3, IMFINZI SOLUTION
     Route: 042
     Dates: start: 20240523, end: 20240523

REACTIONS (1)
  - Hepatocellular injury [Recovered/Resolved]

NARRATIVE: CASE EVENT DATE: 20240611
